FAERS Safety Report 8214747-2 (Version None)
Quarter: 2012Q1

REPORT INFORMATION
  Report Type: 
  Country: None (occurrence: None)
  Receive Date: 20120316
  Receipt Date: 20120314
  Transmission Date: 20120608
  Serious: Yes (Death, Hospitalization)
  Sender: FDA-Public Use
  Company Number: FR-B.I. PHARMACEUTICALS,INC./RIDGEFIELD-2012-FF-00289FF

PATIENT
  Sex: Female

DRUGS (8)
  1. LASIX [Concomitant]
     Dosage: 120 MG
  2. O 2 [Concomitant]
     Indication: RESPIRATORY FAILURE
     Dosage: 1.5L/MIN
  3. DIGOXIN [Concomitant]
     Indication: CARDIAC FAILURE
  4. PRADAXA [Suspect]
     Indication: ATRIAL FIBRILLATION
     Dosage: 220 MG
     Route: 048
     Dates: start: 20111214
  5. LEVOTHYROXINE SODIUM [Concomitant]
     Indication: HYPOTHYROIDISM
     Dosage: 50 MCG
  6. POTASSIUM CHLORIDE [Concomitant]
  7. NICARDIPINE HYDROCHLORIDE [Concomitant]
     Indication: HYPERTENSION
     Dosage: 50 MG
  8. INSULIN [Concomitant]
     Indication: TYPE 1 DIABETES MELLITUS

REACTIONS (2)
  - LUNG INFECTION [None]
  - MULTI-ORGAN FAILURE [None]
